FAERS Safety Report 8041481-4 (Version None)
Quarter: 2012Q1

REPORT INFORMATION
  Report Type: 
  Country: None (occurrence: None)
  Receive Date: 20120112
  Receipt Date: 20120107
  Transmission Date: 20120608
  Serious: Yes (Hospitalization)
  Sender: FDA-Public Use
  Company Number: US-PFIZER INC-2012005171

PATIENT
  Age: 60 Year
  Sex: Female

DRUGS (2)
  1. SORAFENIB [Suspect]
     Indication: THYROID CANCER METASTATIC
     Dosage: UNK
     Route: 048
     Dates: start: 20111020, end: 20120104
  2. TEMSIROLIMUS [Suspect]
     Indication: THYROID CANCER METASTATIC
     Dosage: UNK
     Route: 042
     Dates: start: 20111020, end: 20120104

REACTIONS (3)
  - SINUS TACHYCARDIA [None]
  - FATIGUE [None]
  - DYSPNOEA [None]
